FAERS Safety Report 7328920-9 (Version None)
Quarter: 2011Q1

REPORT INFORMATION
  Report Type: 
  Country: None (occurrence: None)
  Receive Date: 20110218
  Receipt Date: 20110202
  Transmission Date: 20110831
  Serious: Yes (Other)
  Sender: FDA-Public Use
  Company Number: DSA_44867_2011

PATIENT

DRUGS (1)
  1. HERBESSER (HERBESSER-DILTIAZEM (CONT.) [Suspect]
     Indication: PRODUCT USED FOR UNKNOWN INDICATION
     Dosage: DF, ORAL
     Route: 048

REACTIONS (3)
  - SYNCOPE [None]
  - BLOOD PRESSURE DECREASED [None]
  - FEELING COLD [None]
